FAERS Safety Report 4734751-6 (Version None)
Quarter: 2005Q3

REPORT INFORMATION
  Report Type: 
  Country: None (occurrence: None)
  Receive Date: 20050804
  Receipt Date: 20050517
  Transmission Date: 20060218
  Serious: Yes (Death, Life-Threatening)
  Sender: FDA-Public Use
  Company Number: FR-GLAXOSMITHKLINE-B0381594A

PATIENT
  Age: 66 Year
  Sex: Male

DRUGS (17)
  1. AUGMENTIN '125' [Suspect]
     Indication: LUNG INFECTION
     Route: 050
     Dates: start: 20050301, end: 20050321
  2. ALLOPURINOL [Suspect]
     Indication: GOUT
     Dosage: 1UNIT PER DAY
     Route: 048
     Dates: start: 20040601, end: 20050330
  3. ATARAX [Suspect]
     Dosage: 1UNIT PER DAY
     Route: 048
     Dates: start: 20050310, end: 20050326
  4. IOPAMIDOL [Suspect]
     Indication: SCAN
     Route: 042
     Dates: start: 20050223, end: 20050322
  5. OFLOCET [Suspect]
     Indication: LUNG INFECTION
     Route: 048
     Dates: start: 20050310, end: 20050321
  6. EUPANTOL [Suspect]
     Route: 048
     Dates: start: 20050310, end: 20050326
  7. EFFERALGAN [Concomitant]
     Route: 065
  8. ELISOR [Concomitant]
     Route: 065
  9. COVERSYL [Concomitant]
     Route: 065
  10. FORLAX [Concomitant]
     Route: 065
  11. EDUCTYL [Concomitant]
     Route: 065
  12. DURAGESIC-100 [Concomitant]
     Route: 065
  13. LOVENOX [Concomitant]
     Route: 065
  14. CORTANCYL [Concomitant]
     Route: 065
  15. SEVREDOL [Concomitant]
     Route: 065
  16. NUTRISON [Concomitant]
     Route: 065
  17. MICROPAQUE [Concomitant]
     Indication: SCAN
     Route: 048
     Dates: start: 20050322, end: 20050322

REACTIONS (23)
  - ATRIAL FIBRILLATION [None]
  - CARDIAC FAILURE [None]
  - CHEST X-RAY ABNORMAL [None]
  - EJECTION FRACTION DECREASED [None]
  - EPIDERMAL NECROSIS [None]
  - EYE DISORDER [None]
  - GENERAL PHYSICAL HEALTH DETERIORATION [None]
  - GENITAL LESION [None]
  - NIKOLSKY'S SIGN [None]
  - OBSTRUCTIVE AIRWAYS DISORDER [None]
  - PALATAL DISORDER [None]
  - PLEURAL EFFUSION [None]
  - PRODUCTIVE COUGH [None]
  - PULMONARY OEDEMA [None]
  - PYREXIA [None]
  - RASH [None]
  - SEPTIC SHOCK [None]
  - SKIN DISORDER [None]
  - SKIN HYPERPIGMENTATION [None]
  - SKIN LESION [None]
  - THROMBOCYTOPENIA [None]
  - TOXIC EPIDERMAL NECROLYSIS [None]
  - TOXIC SKIN ERUPTION [None]
